FAERS Safety Report 4686142-4 (Version None)
Quarter: 2005Q2

REPORT INFORMATION
  Report Type: 
  Country: None (occurrence: None)
  Receive Date: 20050609
  Receipt Date: 20050603
  Transmission Date: 20051028
  Serious: Yes (Hospitalization)
  Sender: FDA-Public Use
  Company Number: A0561490A

PATIENT
  Age: 77 Year
  Sex: Female
  Weight: 80.8 kg

DRUGS (4)
  1. TOSITUMOMAB [Suspect]
     Indication: NON-HODGKIN'S LYMPHOMA
     Dosage: 450MG SINGLE DOSE
     Route: 042
     Dates: start: 20041119, end: 20041119
  2. IODINE I 131 TOSITUMOMAB [Suspect]
     Indication: NON-HODGKIN'S LYMPHOMA
     Dosage: 4.9MCI SINGLE DOSE
     Route: 042
     Dates: start: 20041119, end: 20041119
  3. TOSITUMOMAB [Suspect]
     Dosage: 450MG SINGLE DOSE
     Route: 042
     Dates: start: 20041126, end: 20041126
  4. IODINE I 131 TOSITUMOMAB [Suspect]
     Dosage: 84.4MCI SINGLE DOSE
     Route: 042
     Dates: start: 20041126, end: 20041126

REACTIONS (4)
  - DIZZINESS [None]
  - HYPERHIDROSIS [None]
  - SYNCOPE [None]
  - SYNCOPE VASOVAGAL [None]
